FAERS Safety Report 8490565-5 (Version None)
Quarter: 2012Q3

REPORT INFORMATION
  Report Type: 
  Country: None (occurrence: None)
  Receive Date: 20120705
  Receipt Date: 20120627
  Transmission Date: 20120928
  Serious: Yes (Other)
  Sender: FDA-Public Use
  Company Number: IT-ABBOTT-12P-083-0950450-00

PATIENT
  Sex: Female

DRUGS (2)
  1. XYZAL [Concomitant]
     Indication: PRODUCT USED FOR UNKNOWN INDICATION
     Route: 048
  2. CLARITHROMYCIN [Suspect]
     Indication: INFECTED BITES
     Route: 048
     Dates: start: 20120622, end: 20120622

REACTIONS (5)
  - ABDOMINAL DISCOMFORT [None]
  - VOMITING [None]
  - ERYTHEMA [None]
  - DIARRHOEA [None]
  - STOMATITIS [None]
